FAERS Safety Report 7554945-4 (Version None)
Quarter: 2011Q2

REPORT INFORMATION
  Report Type: 
  Country: None (occurrence: None)
  Receive Date: 20110617
  Receipt Date: 20110608
  Transmission Date: 20111010
  Serious: Yes (Death)
  Sender: FDA-Public Use
  Company Number: FR-TEVA-285455ISR

PATIENT
  Sex: Male

DRUGS (5)
  1. NEUPRO [Suspect]
     Indication: PARKINSON'S DISEASE
     Dosage: 4 MILLIGRAM;
     Route: 062
     Dates: start: 20110418, end: 20110420
  2. SINEMET [Suspect]
     Indication: PARKINSON'S DISEASE
     Dosage: 50MG/200MG
     Route: 048
     Dates: start: 20061228, end: 20110420
  3. AZILECT [Suspect]
     Indication: PARKINSON'S DISEASE
     Dosage: 1 MILLIGRAM;
     Route: 048
     Dates: start: 20100717, end: 20110420
  4. STALEVO 100 [Suspect]
     Indication: PARKINSON'S DISEASE
     Dosage: 150MG/37.5MG/200MG
     Route: 048
     Dates: start: 20050604, end: 20110420
  5. ROPINIROLE HYDROCHLORIDE [Suspect]
     Indication: PARKINSON'S DISEASE
     Route: 048
     Dates: end: 20110417

REACTIONS (2)
  - CHEST PAIN [None]
  - DEATH [None]
